FAERS Safety Report 5399974-4 (Version None)
Quarter: 2007Q3

REPORT INFORMATION
  Report Type: 
  Country: None (occurrence: None)
  Receive Date: 20070726
  Receipt Date: 20070726
  Transmission Date: 20080115
  Serious: Yes (Life-Threatening, Hospitalization, Other)
  Sender: FDA-Public Use
  Company Number: None

PATIENT
  Age: 87 Year
  Sex: Female
  Weight: 40.098 kg

DRUGS (6)
  1. WARFARIN SODIUM [Suspect]
     Indication: ATRIAL FIBRILLATION
     Dosage: 3.75 MG DAILY PO
     Route: 048
     Dates: end: 20070127
  2. HYDROCODONE BITARTRATE [Concomitant]
  3. TOPROL-XL [Concomitant]
  4. LEVOTHYROXINE SODIUM [Concomitant]
  5. ALBUTEROL [Concomitant]
  6. MEGESTEROL ACETATE [Concomitant]

REACTIONS (3)
  - ANAEMIA [None]
  - HAEMOPTYSIS [None]
  - INTERNATIONAL NORMALISED RATIO INCREASED [None]
